FAERS Safety Report 4500569-2 (Version None)
Quarter: 2004Q4

REPORT INFORMATION
  Report Type: 
  Country: None (occurrence: None)
  Receive Date: 20041115
  Receipt Date: 20041103
  Transmission Date: 20050328
  Serious: Yes (Hospitalization, Other)
  Sender: FDA-Public Use
  Company Number: TR-JNJFOC-20040705023

PATIENT
  Age: 43 Year
  Sex: Female
  Weight: 63 kg

DRUGS (2)
  1. REMICADE [Suspect]
     Indication: RHEUMATOID ARTHRITIS
     Route: 042
  2. METHOTREXATE [Concomitant]
     Route: 049

REACTIONS (10)
  - ADNEXA UTERI MASS [None]
  - ASCITES [None]
  - FALLOPIAN TUBE CYST [None]
  - GRANULOMA [None]
  - INFLAMMATION [None]
  - OOPHORITIS [None]
  - OVARIAN CYST [None]
  - OVARIAN NECROSIS [None]
  - TUBERCULOSIS [None]
  - UTERINE POLYP [None]
